FAERS Safety Report 4690104-0 (Version None)
Quarter: 2005Q2

REPORT INFORMATION
  Report Type: 
  Country: None (occurrence: None)
  Receive Date: 20050613
  Receipt Date: 20050601
  Transmission Date: 20051028
  Serious: Yes (Other)
  Sender: FDA-Public Use
  Company Number: HQWYE129302JUN05

PATIENT
  Age: 35 Year
  Sex: Male

DRUGS (1)
  1. RAPAMUNE [Suspect]
     Indication: GLOMERULONEPHRITIS FOCAL
     Dosage: UNSPECIFIED

REACTIONS (2)
  - DRUG INEFFECTIVE [None]
  - NEPHROTIC SYNDROME [None]
